FAERS Safety Report 18020027 (Version 1)
Quarter: 2020Q3

REPORT INFORMATION
  Report Type: Spontaneous
  Country: US (occurrence: US)
  Receive Date: 20200714
  Receipt Date: 20200714
  Transmission Date: 20201103
  Serious: No
  Sender: FDA-Public Use
  Company Number: None

PATIENT
  Age: 45 Year
  Sex: Male
  Weight: 60.3 kg

DRUGS (4)
  1. LEVOTHYROXINE. [Concomitant]
     Active Substance: LEVOTHYROXINE
  2. CALCIUM [Concomitant]
     Active Substance: CALCIUM
  3. MEN^S MULTIVITAMIN [Concomitant]
  4. SENOKOT [Suspect]
     Active Substance: SENNOSIDES
     Indication: IRRITABLE BOWEL SYNDROME
     Route: 048
     Dates: start: 20200429, end: 20200611

REACTIONS (1)
  - Back pain [None]

NARRATIVE: CASE EVENT DATE: 20200611
